FAERS Safety Report 6248126-4 (Version None)
Quarter: 2009Q2

REPORT INFORMATION
  Report Type: 
  Country: None (occurrence: None)
  Receive Date: 20090624
  Receipt Date: 20090624
  Transmission Date: 20091009
  Serious: Yes (Other)
  Sender: FDA-Public Use
  Company Number: None

PATIENT
  Age: 38 Year
  Sex: Female
  Weight: 63.5036 kg

DRUGS (4)
  1. LAMOTRIGINE [Suspect]
     Dates: start: 20090321, end: 20090326
  2. KLONOPIN [Concomitant]
  3. BUSPAR [Concomitant]
  4. AMBIEN [Concomitant]

REACTIONS (3)
  - DISTURBANCE IN ATTENTION [None]
  - HEADACHE [None]
  - PRODUCT SUBSTITUTION ISSUE [None]
